FAERS Safety Report 11561211 (Version 2)
Quarter: 2015Q4

REPORT INFORMATION
  Report Type: Spontaneous
  Country: BR (occurrence: BR)
  Receive Date: 20150928
  Receipt Date: 20151013
  Transmission Date: 20160304
  Serious: Yes (Other)
  Sender: FDA-Public Use
  Company Number: BR-ASTRAZENECA-2015SE92350

PATIENT
  Age: 626 Month
  Sex: Female
  Weight: 74 kg

DRUGS (3)
  1. LUFTAL [Concomitant]
     Dosage: AS REQUIRED
     Route: 048
  2. ATACAND HCT [Suspect]
     Active Substance: CANDESARTAN CILEXETIL\HYDROCHLOROTHIAZIDE
     Indication: HYPERTENSION
     Dosage: 16/12.5MG, DAILY
     Route: 048
     Dates: start: 2010
  3. SIMVASTATIN. [Suspect]
     Active Substance: SIMVASTATIN
     Indication: BLOOD CHOLESTEROL INCREASED
     Dosage: DAILY
     Route: 048
     Dates: start: 201409, end: 2015

REACTIONS (6)
  - Blood cholesterol increased [Unknown]
  - Depression [Recovered/Resolved]
  - Hyperglycaemia [Unknown]
  - Lip swelling [Recovering/Resolving]
  - Hypoaesthesia [Recovered/Resolved]
  - Urticaria [Recovering/Resolving]

NARRATIVE: CASE EVENT DATE: 201409
